FAERS Safety Report 14125108 (Version 1)
Quarter: 2017Q4

REPORT INFORMATION
  Report Type: Spontaneous
  Country: RO (occurrence: RO)
  Receive Date: 20171025
  Receipt Date: 20171025
  Transmission Date: 20180321
  Serious: Yes (Life-Threatening, Hospitalization)
  Sender: FDA-Public Use
  Company Number: RO-SA-2017SA205034

PATIENT
  Age: 29 Year
  Sex: Female
  Weight: 55 kg

DRUGS (1)
  1. DOXYLAMINE SUCCINATE. [Suspect]
     Active Substance: DOXYLAMINE SUCCINATE
     Indication: SUICIDE ATTEMPT
     Dosage: 1 TABLET=25 MG, TOTAL DOSE=2.25 G
     Route: 048

REACTIONS (7)
  - Overdose [Unknown]
  - Suicide attempt [Unknown]
  - Confusional state [Recovering/Resolving]
  - Agitation [Recovering/Resolving]
  - Coma [Recovered/Resolved]
  - Seizure [Recovering/Resolving]
  - Toxicity to various agents [Recovering/Resolving]
